FAERS Safety Report 17691537 (Version 1)
Quarter: 2020Q2

REPORT INFORMATION
  Report Type: Spontaneous
  Country: DK (occurrence: DK)
  Receive Date: 20200422
  Receipt Date: 20200422
  Transmission Date: 20200714
  Serious: Yes (Life-Threatening)
  Sender: FDA-Public Use
  Company Number: DK-B.I. PHARMACEUTICALS,INC./RIDGEFIELD-2020-12-020818

PATIENT
  Age: 76 Year
  Sex: Female
  Weight: 40 kg

DRUGS (7)
  1. AMLODIPIN ACTAVIS [AMLODIPINE MESILATE] [Concomitant]
     Indication: HYPERTENSION
     Dosage: STYRKE: 10 MG
     Route: 048
     Dates: start: 20120907
  2. ATORVASTATIN HEXAL [Concomitant]
     Active Substance: ATORVASTATIN
     Indication: HYPERCHOLESTEROLAEMIA
     Dosage: STYRKE: 40 MG
     Route: 048
     Dates: start: 201805
  3. JARDIANCE [Suspect]
     Active Substance: EMPAGLIFLOZIN
     Indication: TYPE 2 DIABETES MELLITUS
     Dosage: STYRKE: 10 MG
     Route: 048
     Dates: start: 20200103, end: 20200407
  4. SPIRON [SPIRONOLACTONE] [Concomitant]
     Indication: HYPERTENSION
     Dosage: STYRKE: 25 MG
     Route: 048
     Dates: start: 20160525
  5. PANTOPRAZOL [PANTOPRAZOLE SODIUM SESQUIHYDRATE] [Concomitant]
     Active Substance: PANTOPRAZOLE SODIUM
     Indication: GASTRIC ULCER
     Dosage: STYRKE: 40 MG
     Route: 048
     Dates: start: 20180819
  6. METFORMIN AUROBINDO [Concomitant]
     Active Substance: METFORMIN HYDROCHLORIDE
     Indication: TYPE 2 DIABETES MELLITUS
     Dosage: STYRKE: 500 MG
     Route: 048
     Dates: start: 201805
  7. RAMIPRIL ACTAVIS [Concomitant]
     Active Substance: RAMIPRIL
     Indication: HYPERTENSION
     Dosage: STYRKE: 5 MG
     Route: 048
     Dates: start: 20160523

REACTIONS (1)
  - Ketoacidosis [Recovered/Resolved]

NARRATIVE: CASE EVENT DATE: 20200407
